FAERS Safety Report 21730984 (Version 2)
Quarter: 2023Q1

REPORT INFORMATION
  Report Type: Report from Study
  Country: BR (occurrence: BR)
  Receive Date: 20221215
  Receipt Date: 20230316
  Transmission Date: 20230417
  Serious: Yes (Other)
  Sender: FDA-Public Use
  Company Number: BR-CELLTRION INC.-2022BR020970

PATIENT

DRUGS (10)
  1. INFLIXIMAB [Suspect]
     Active Substance: INFLIXIMAB
     Indication: Colitis ulcerative
     Dosage: 4 AMPOULES EVERY 2 MONTHS
     Route: 042
     Dates: start: 20221208
  2. INFLIXIMAB [Suspect]
     Active Substance: INFLIXIMAB
     Indication: Arthritis enteropathic
  3. AZULFIDINE [Concomitant]
     Active Substance: SULFASALAZINE
     Indication: Colitis ulcerative
     Dosage: 2 PILLS A DAY
     Route: 048
  4. AZULFIDINE [Concomitant]
     Active Substance: SULFASALAZINE
     Indication: Arthritis enteropathic
  5. PREDNISONE [Concomitant]
     Active Substance: PREDNISONE
     Indication: Colitis ulcerative
     Dosage: 2 PILLS A DAY
     Route: 048
  6. PREDNISONE [Concomitant]
     Active Substance: PREDNISONE
     Indication: Arthritis enteropathic
  7. QUETIAPINE [Concomitant]
     Active Substance: QUETIAPINE
     Indication: Depression
     Dosage: 1 PILL A DAY
     Route: 048
  8. PREGABALIN [Concomitant]
     Active Substance: PREGABALIN
     Indication: Depression
     Dosage: 1 PILL A DAY
     Route: 048
  9. RIVOTRIL [Concomitant]
     Active Substance: CLONAZEPAM
     Indication: Depression
     Dosage: 20 DROPS PER DAY
     Route: 048
  10. SERTRALINE [Concomitant]
     Active Substance: SERTRALINE HYDROCHLORIDE
     Indication: Depression
     Dosage: 1 PILL A DAY
     Route: 048

REACTIONS (9)
  - Neck pain [Unknown]
  - Pain in extremity [Unknown]
  - Diarrhoea [Unknown]
  - Pain [Unknown]
  - Treatment delayed [Unknown]
  - Suspected product quality issue [Unknown]
  - Product storage error [Unknown]
  - Intercepted product administration error [Unknown]
  - Off label use [Unknown]
